FAERS Safety Report 7493394-4 (Version None)
Quarter: 2011Q2

REPORT INFORMATION
  Report Type: 
  Country: None (occurrence: None)
  Receive Date: 20110520
  Receipt Date: 20110516
  Transmission Date: 20111010
  Serious: Yes (Other)
  Sender: FDA-Public Use
  Company Number: US-PFIZER INC-2011087006

PATIENT
  Sex: Female
  Weight: 68.027 kg

DRUGS (2)
  1. XALATAN [Suspect]
     Indication: CATARACT OPERATION
     Dosage: 1 GTT IN EACH EYE, 1X/DAY AT BEDTIME
     Route: 047
     Dates: start: 20110401
  2. LEVOXYL [Concomitant]
     Indication: THYROID DISORDER
     Dosage: 50 MCG DAILY
     Route: 048

REACTIONS (2)
  - EYE HAEMORRHAGE [None]
  - EYE IRRITATION [None]
